FAERS Safety Report 7692834-5 (Version None)
Quarter: 2011Q3

REPORT INFORMATION
  Report Type: 
  Country: None (occurrence: None)
  Receive Date: 20110819
  Receipt Date: 20110809
  Transmission Date: 20111222
  Serious: Yes (Other)
  Sender: FDA-Public Use
  Company Number: FR-JNJFOC-20110610409

PATIENT
  Sex: Male
  Weight: 60 kg

DRUGS (6)
  1. INSULIN [Concomitant]
     Indication: PRODUCT USED FOR UNKNOWN INDICATION
     Route: 065
  2. ABIRATERONE ACETATE [Suspect]
     Indication: PROSTATE CANCER
     Route: 048
     Dates: start: 20110401
  3. ABIRATERONE ACETATE [Suspect]
     Route: 048
     Dates: start: 20110601
  4. CORTICOSTEROIDS [Suspect]
     Indication: PRODUCT USED FOR UNKNOWN INDICATION
     Route: 065
  5. PREDNISONE [Suspect]
     Indication: PROSTATE CANCER
     Route: 048
  6. PREDNISONE [Suspect]
     Route: 048

REACTIONS (5)
  - PROSTATIC SPECIFIC ANTIGEN INCREASED [None]
  - HYPERGLYCAEMIA [None]
  - MALAISE [None]
  - GENERAL PHYSICAL HEALTH DETERIORATION [None]
  - DRUG ADMINISTRATION ERROR [None]
